FAERS Safety Report 8055687-1 (Version None)
Quarter: 2011Q4

REPORT INFORMATION
  Report Type: 
  Country: None (occurrence: None)
  Receive Date: 20111215
  Receipt Date: 20110126
  Transmission Date: 20120403
  Serious: Yes (Hospitalization, Other)
  Sender: FDA-Public Use
  Company Number: WAES 1101USA03170

PATIENT
  Sex: Male
  Weight: 71.6683 kg

DRUGS (1)
  1. ISENTRESS [Suspect]
     Indication: PRODUCT USED FOR UNKNOWN INDICATION
     Dosage: 400 MG/BID/PO
     Route: 048

REACTIONS (3)
  - VOMITING [None]
  - NAUSEA [None]
  - DIARRHOEA [None]
